FAERS Safety Report 8794424 (Version 1)
Quarter: 2012Q4

REPORT INFORMATION
  Report Type: Report from Study
  Country: US (occurrence: US)
  Receive Date: 20120917
  Receipt Date: 20120917
  Transmission Date: 20130627
  Serious: No
  Sender: FDA-Public Use
  Company Number: US-VERTEX PHARMACEUTICAL INC.-AE-2012-010490

PATIENT
  Sex: Male
  Weight: 113 kg

DRUGS (11)
  1. VX-950 [Suspect]
     Indication: HEPATITIS C
     Dosage: 750 mg, tid
     Route: 048
     Dates: start: 201211
  2. PEGASYS [Concomitant]
     Indication: HEPATITIS C
     Dates: start: 201111
  3. RIBASPHERE [Concomitant]
     Indication: HEPATITIS C
     Route: 048
     Dates: start: 201111
  4. SERTRALINE HCL [Concomitant]
  5. CARVIDILOL [Concomitant]
  6. LISINOPRIL [Concomitant]
  7. CRESTOR [Concomitant]
  8. TRAZODONE [Concomitant]
  9. PLAVIX [Concomitant]
  10. NEUPOGEN [Concomitant]
     Route: 058
  11. PROCRIT [Concomitant]
     Dosage: UNK
     Route: 058

REACTIONS (1)
  - Drug ineffective [Unknown]
